FAERS Safety Report 13676921 (Version 1)
Quarter: 2017Q2

REPORT INFORMATION
  Report Type: Spontaneous
  Country: US (occurrence: US)
  Receive Date: 20170621
  Receipt Date: 20170621
  Transmission Date: 20170830
  Serious: No
  Sender: FDA-Public Use
  Company Number: None

PATIENT
  Sex: Male

DRUGS (2)
  1. METHOTREXATE 2.5MG [Suspect]
     Active Substance: METHOTREXATE
     Route: 048
  2. PREDNISONE 5MG [Suspect]
     Active Substance: PREDNISONE
     Route: 048

REACTIONS (1)
  - Treatment noncompliance [None]
